FAERS Safety Report 4285712-5 (Version None)
Quarter: 2004Q1

REPORT INFORMATION
  Report Type: 
  Country: None (occurrence: None)
  Receive Date: 20040203
  Receipt Date: 20040127
  Transmission Date: 20041129
  Serious: Yes (Hospitalization)
  Sender: FDA-Public Use
  Company Number: 2004CG00167

PATIENT
  Age: 85 Year
  Sex: Male

DRUGS (7)
  1. ATACAND [Suspect]
     Dates: end: 20040104
  2. COLOPRIV [Suspect]
     Dates: end: 20040104
  3. DI-ANTALVIC [Suspect]
     Dates: end: 20040104
  4. LEXOMIL [Suspect]
     Dates: end: 20040104
  5. LANZOR [Suspect]
     Dates: end: 20040104
  6. VIOXX [Suspect]
     Dates: end: 20040104
  7. TEMESTA [Concomitant]

REACTIONS (1)
  - HALLUCINATION, VISUAL [None]
